FAERS Safety Report 7921948-7 (Version None)
Quarter: 2011Q4

REPORT INFORMATION
  Report Type: 
  Country: None (occurrence: None)
  Receive Date: 20111117
  Receipt Date: 20111114
  Transmission Date: 20120403
  Serious: Yes (Hospitalization, Other)
  Sender: FDA-Public Use
  Company Number: US-ABBOTT-11P-163-0871848-00

PATIENT
  Sex: Male
  Weight: 99.88 kg

DRUGS (5)
  1. HUMIRA [Suspect]
     Indication: ANKYLOSING SPONDYLITIS
     Route: 058
     Dates: start: 20110401, end: 20110401
  2. UNKNOWN MEDICATION [Concomitant]
     Indication: HYPERTENSION
  3. UNKNOWN MEDICATION [Concomitant]
     Indication: BLOOD CHOLESTEROL INCREASED
  4. UNKNOWN MEDICATION [Concomitant]
     Indication: TYPE 2 DIABETES MELLITUS
  5. LANTUS [Concomitant]
     Indication: TYPE 2 DIABETES MELLITUS
     Dosage: 5 CLICKS QD
     Route: 058

REACTIONS (7)
  - CHOLECYSTITIS INFECTIVE [None]
  - PYREXIA [None]
  - HEADACHE [None]
  - PAIN [None]
  - HEPATIC LESION [None]
  - WEIGHT DECREASED [None]
  - MENTAL STATUS CHANGES [None]
